FAERS Safety Report 13965749 (Version 2)
Quarter: 2017Q4

REPORT INFORMATION
  Report Type: Spontaneous
  Country: CA (occurrence: CA)
  Receive Date: 20170913
  Receipt Date: 20171026
  Transmission Date: 20180320
  Serious: Yes (Life-Threatening, Hospitalization, Other)
  Sender: FDA-Public Use
  Company Number: CA-SA-2017SA166622

PATIENT
  Age: 70 Year
  Sex: Male
  Weight: 120.5 kg

DRUGS (6)
  1. HUMIRA [Suspect]
     Active Substance: ADALIMUMAB
     Indication: RHEUMATOID ARTHRITIS
     Dosage: SOLUTION?SUBCUTANEOUS
     Route: 058
     Dates: start: 201505, end: 20151021
  2. LYRICA [Concomitant]
     Active Substance: PREGABALIN
     Indication: PAIN
     Route: 065
  3. METFORMIN [Concomitant]
     Active Substance: METFORMIN HYDROCHLORIDE
     Indication: DIABETES MELLITUS
  4. METHOTREXATE. [Concomitant]
     Active Substance: METHOTREXATE
     Indication: RHEUMATOID ARTHRITIS
     Route: 065
     Dates: start: 20020624
  5. ENBREL [Suspect]
     Active Substance: ETANERCEPT
     Indication: RHEUMATOID ARTHRITIS
     Route: 058
     Dates: start: 201307, end: 201503
  6. LEFLUNOMIDE. [Suspect]
     Active Substance: LEFLUNOMIDE
     Indication: PRODUCT USED FOR UNKNOWN INDICATION
     Route: 048
     Dates: start: 20031202, end: 20150404

REACTIONS (14)
  - Oedema peripheral [Unknown]
  - Pain [Unknown]
  - Arthropathy [Unknown]
  - Diabetes mellitus [Unknown]
  - Apparent death [Unknown]
  - Bone marrow failure [Unknown]
  - Inflammation [Recovering/Resolving]
  - Condition aggravated [Unknown]
  - Hypersensitivity [Unknown]
  - Rash [Recovering/Resolving]
  - Exercise tolerance decreased [Unknown]
  - Musculoskeletal disorder [Unknown]
  - Drug interaction [Unknown]
  - Drug ineffective [Unknown]
